FAERS Safety Report 4854541-3 (Version None)
Quarter: 2005Q4

REPORT INFORMATION
  Report Type: 
  Country: None (occurrence: None)
  Receive Date: 20051215
  Receipt Date: 20051208
  Transmission Date: 20060501
  Serious: Yes (Hospitalization)
  Sender: FDA-Public Use
  Company Number: FR-ROCHE-427904

PATIENT
  Age: 14 Year
  Sex: Female
  Weight: 44 kg

DRUGS (2)
  1. ROCEPHIN [Suspect]
     Indication: DRUG USE FOR UNKNOWN INDICATION
     Route: 042
     Dates: start: 20051020, end: 20051022
  2. HYDREA [Suspect]
     Indication: DRUG USE FOR UNKNOWN INDICATION
     Route: 048
     Dates: start: 20051020, end: 20051022

REACTIONS (5)
  - ABDOMINAL PAIN [None]
  - HEPATIC ENZYME INCREASED [None]
  - LIVER DISORDER [None]
  - PYREXIA [None]
  - VENOOCCLUSIVE DISEASE [None]
